FAERS Safety Report 20196286 (Version 2)
Quarter: 2021Q4

REPORT INFORMATION
  Report Type: Spontaneous
  Country: JP (occurrence: JP)
  Receive Date: 20211216
  Receipt Date: 20211229
  Transmission Date: 20220304
  Serious: Yes (Hospitalization)
  Sender: FDA-Public Use
  Company Number: JP-TEVA-2021-JP-1986885

PATIENT
  Age: 85 Year
  Sex: Male
  Weight: 46 kg

DRUGS (4)
  1. ACARBOSE [Suspect]
     Active Substance: ACARBOSE
     Indication: Dumping syndrome
     Route: 065
  2. VOGLIBOSE [Suspect]
     Active Substance: VOGLIBOSE
     Indication: Dumping syndrome
     Dosage: BEFORE EVERY MEAL
     Route: 065
  3. GARENOXACIN MESYLATE [Suspect]
     Active Substance: GARENOXACIN MESYLATE
     Indication: Influenza
     Route: 065
     Dates: start: 20090311
  4. DEXTROSE [Concomitant]
     Active Substance: DEXTROSE
     Indication: Postprandial hypoglycaemia
     Route: 065

REACTIONS (2)
  - Hypoglycaemia [Recovered/Resolved]
  - Drug ineffective [Unknown]

NARRATIVE: CASE EVENT DATE: 20090101
